FAERS Safety Report 26125407 (Version 1)
Quarter: 2025Q4

REPORT INFORMATION
  Report Type: Spontaneous
  Country: GB (occurrence: GB)
  Receive Date: 20251205
  Receipt Date: 20251205
  Transmission Date: 20260118
  Serious: Yes (Other)
  Sender: ORION PHARMA
  Company Number: None

PATIENT
  Age: 63 Year
  Sex: Female
  Weight: 94 kg

DRUGS (6)
  1. METHOTREXATE [Interacting]
     Active Substance: METHOTREXATE
     Indication: Product used for unknown indication
     Dosage: FIVE TABLETS
  2. TIRZEPATIDE [Interacting]
     Active Substance: TIRZEPATIDE
     Indication: Product used for unknown indication
     Dosage: STRENGTH: 2.5MG/0.6ML, 2.4ML PRE-FILLED DISPOSABLE DEVICES, PRIVATELY. 2.5 MG BUT INCREASED TO 10 MG
     Dates: start: 20250311
  3. MOMETASONE [Concomitant]
     Active Substance: MOMETASONE
     Dosage: TWO SPRAYS TO BE USED IN EACH NOSTRIL TWICE A DAY, THEN REDUCE WHEN SYMPTOMS UNDER CONTROL
     Dates: start: 20250317
  4. DOXYCYCLINE [Concomitant]
     Active Substance: DOXYCYCLINE
     Dosage: FIRST DAY
     Dates: start: 20250317, end: 20250317
  5. DOXYCYCLINE [Concomitant]
     Active Substance: DOXYCYCLINE
     Dates: start: 20250318, end: 20250429
  6. SOLIFENACIN [Concomitant]
     Active Substance: SOLIFENACIN
     Dates: start: 20250502

REACTIONS (3)
  - Drug interaction [Unknown]
  - Alanine aminotransferase increased [Recovered/Resolved]
  - Blood lactate dehydrogenase increased [Recovered/Resolved]

NARRATIVE: CASE EVENT DATE: 20250101
